FAERS Safety Report 6138531-9 (Version None)
Quarter: 2009Q1

REPORT INFORMATION
  Report Type: 
  Country: None (occurrence: None)
  Receive Date: 20090327
  Receipt Date: 20090327
  Transmission Date: 20090719
  Serious: Yes (Life-Threatening, Hospitalization)
  Sender: FDA-Public Use
  Company Number: None

PATIENT
  Age: 48 Year
  Sex: Male
  Weight: 80 kg

DRUGS (4)
  1. ENBREL [Suspect]
     Indication: RHEUMATOID ARTHRITIS
     Dosage: 50 MG EVERY 7 DAYS SC
     Route: 058
  2. METHOTREXATE [Concomitant]
  3. PLAQUENIL [Concomitant]
  4. PREDNISONE [Concomitant]

REACTIONS (6)
  - CHILLS [None]
  - DECREASED APPETITE [None]
  - PLEURAL EFFUSION [None]
  - PNEUMOTHORAX [None]
  - PURULENCE [None]
  - PYREXIA [None]
